FAERS Safety Report 5151754-0 (Version None)
Quarter: 2006Q4

REPORT INFORMATION
  Report Type: 
  Country: None (occurrence: None)
  Receive Date: 20061109
  Receipt Date: 20061027
  Transmission Date: 20070319
  Serious: Yes (Other)
  Sender: FDA-Public Use
  Company Number: CHNY2006AU02855

PATIENT
  Age: 51 Year
  Sex: Male

DRUGS (5)
  1. ALPHAPHARM QUITX (NCH)  (NICOTINE) TRANS-THERAPEUTIC-SYSTEM [Suspect]
     Dosage: 21 MG, TRANSDERMAL
     Route: 062
     Dates: start: 20060817, end: 20060825
  2. MS CONTIN [Concomitant]
  3. DUCENE (DIAZEPAM) [Concomitant]
  4. ZOLOFT [Concomitant]
  5. IBUPROFEN [Concomitant]

REACTIONS (7)
  - APPLICATION SITE BRUISING [None]
  - EYE SWELLING [None]
  - HYPERSENSITIVITY [None]
  - RASH GENERALISED [None]
  - SWELLING FACE [None]
  - URTICARIA GENERALISED [None]
  - WHITE BLOOD CELL COUNT INCREASED [None]
